FAERS Safety Report 18105006 (Version 1)
Quarter: 2020Q3

REPORT INFORMATION
  Report Type: Spontaneous
  Country: PL (occurrence: PL)
  Receive Date: 20200804
  Receipt Date: 20200804
  Transmission Date: 20201103
  Serious: Yes (Life-Threatening)
  Sender: FDA-Public Use
  Company Number: PL-TEVA-2020-PL-1808230

PATIENT
  Age: 52 Year
  Sex: Male
  Weight: 62 kg

DRUGS (5)
  1. NAVELBINE [Suspect]
     Active Substance: VINORELBINE TARTRATE
     Route: 042
     Dates: start: 20171205, end: 20171205
  2. CARBOPLATINE [Suspect]
     Active Substance: CARBOPLATIN
     Route: 042
     Dates: start: 20171128, end: 20171128
  3. NAVIREL [Suspect]
     Active Substance: VINORELBINE TARTRATE
     Route: 042
     Dates: start: 20171205, end: 20171205
  4. NAVIREL [Suspect]
     Active Substance: VINORELBINE TARTRATE
     Route: 042
     Dates: start: 20171128, end: 20171128
  5. NAVELBINE [Suspect]
     Active Substance: VINORELBINE TARTRATE
     Route: 042
     Dates: start: 20171128, end: 20171128

REACTIONS (2)
  - Febrile neutropenia [Unknown]
  - Neutropenia [Unknown]

NARRATIVE: CASE EVENT DATE: 20171207
